FAERS Safety Report 18861412 (Version 1)
Quarter: 2021Q1

REPORT INFORMATION
  Report Type: Report from Study
  Country: HN (occurrence: HN)
  Receive Date: 20210208
  Receipt Date: 20210208
  Transmission Date: 20210420
  Serious: Yes (Disabling, Other)
  Sender: FDA-Public Use
  Company Number: PHHY2018HN132820

PATIENT
  Age: 70 Year
  Sex: Male

DRUGS (2)
  1. DIOVAN [Suspect]
     Active Substance: VALSARTAN
     Indication: PRODUCT USED FOR UNKNOWN INDICATION
     Dosage: 320 MG, STARTED APPROXIMATELY 5 YEARS AGO
     Route: 065
  2. EXFORGE [Suspect]
     Active Substance: AMLODIPINE BESYLATE\VALSARTAN
     Indication: PRODUCT USED FOR UNKNOWN INDICATION
     Dosage: UNK, STOPS APPROXIMATELY 5 YEARS AGO
     Route: 065

REACTIONS (4)
  - Neuropathy peripheral [Unknown]
  - Gait disturbance [Recovering/Resolving]
  - Vitamin B12 deficiency [Unknown]
  - Diabetes mellitus [Unknown]
